FAERS Safety Report 7817890-2 (Version None)
Quarter: 2011Q4

REPORT INFORMATION
  Report Type: 
  Country: None (occurrence: None)
  Receive Date: 20111017
  Receipt Date: 20111013
  Transmission Date: 20120403
  Serious: Yes (Other)
  Sender: FDA-Public Use
  Company Number: US-GLAXOSMITHKLINE-A0945457A

PATIENT
  Age: 33 Year
  Sex: Female

DRUGS (1)
  1. ALLI [Suspect]
     Indication: WEIGHT LOSS DIET
     Route: 048

REACTIONS (6)
  - HAEMATOCHEZIA [None]
  - HAEMORRHOIDS [None]
  - RECTAL DISCHARGE [None]
  - PAINFUL DEFAECATION [None]
  - PROCTALGIA [None]
  - ANORECTAL DISCOMFORT [None]
